FAERS Safety Report 9180325 (Version 1)
Quarter: 2013Q1

REPORT INFORMATION
  Report Type: Spontaneous
  Country: US (occurrence: US)
  Receive Date: 20130322
  Receipt Date: 20130322
  Transmission Date: 20140127
  Serious: No
  Sender: FDA-Public Use
  Company Number: US-BIOGENIDEC-2011BI041459

PATIENT
  Age: 47 Year
  Sex: Female

DRUGS (4)
  1. AVONEX [Suspect]
     Indication: MULTIPLE SCLEROSIS
     Route: 030
     Dates: start: 20110831, end: 20110907
  2. AVONEX [Suspect]
     Indication: MULTIPLE SCLEROSIS
     Route: 030
     Dates: start: 20110914
  3. AVONEX [Suspect]
     Indication: MULTIPLE SCLEROSIS
     Route: 030
     Dates: end: 20110922
  4. IBUPROFEN [Concomitant]
     Indication: PREMEDICATION
     Dates: start: 20110831, end: 20110922

REACTIONS (3)
  - Mobility decreased [Recovered/Resolved]
  - Paralysis [Recovered/Resolved]
  - Influenza like illness [Recovered/Resolved]
